FAERS Safety Report 5989582-6 (Version None)
Quarter: 2008Q4

REPORT INFORMATION
  Report Type: 
  Country: None (occurrence: None)
  Receive Date: 20081204
  Receipt Date: 20081124
  Transmission Date: 20090506
  Serious: Yes (Hospitalization)
  Sender: FDA-Public Use
  Company Number: 2008-187392-NL

PATIENT
  Sex: Female

DRUGS (4)
  1. MIRTAZAPINE [Suspect]
     Indication: DEPRESSION
     Dosage: 24 MG
     Dates: start: 20071001, end: 20080221
  2. CLOZAPINE [Concomitant]
  3. LORAZEPAM [Concomitant]
  4. HALOPERIDOL [Concomitant]

REACTIONS (3)
  - EMOTIONAL DISTRESS [None]
  - HEPATIC STEATOSIS [None]
  - MENTAL DISORDER [None]
